FAERS Safety Report 19389756 (Version 1)
Quarter: 2021Q2

REPORT INFORMATION
  Report Type: Spontaneous
  Country: US (occurrence: US)
  Receive Date: 20210608
  Receipt Date: 20210608
  Transmission Date: 20210717
  Serious: No
  Sender: FDA-Public Use
  Company Number: US-PFIZER INC-2021289380

PATIENT
  Age: 51 Year
  Sex: Female

DRUGS (1)
  1. IBRANCE [Suspect]
     Active Substance: PALBOCICLIB
     Dosage: 125 MG
     Dates: start: 20201103

REACTIONS (8)
  - Feeding disorder [Unknown]
  - Peripheral swelling [Unknown]
  - Oral mucosal blistering [Unknown]
  - Dysgeusia [Unknown]
  - Weight fluctuation [Unknown]
  - Alopecia [Unknown]
  - Energy increased [Unknown]
  - Fatigue [Unknown]
